FAERS Safety Report 6507023-7 (Version None)
Quarter: 2009Q4

REPORT INFORMATION
  Report Type: 
  Country: None (occurrence: None)
  Receive Date: 20091221
  Receipt Date: 20091215
  Transmission Date: 20100525
  Serious: Yes (Other)
  Sender: FDA-Public Use
  Company Number: TR-ELI_LILLY_AND_COMPANY-TR200912003382

PATIENT
  Age: 42 Year
  Sex: Male

DRUGS (4)
  1. HUMALOG [Suspect]
     Indication: DIABETES MELLITUS
     Dosage: 15 IU, 3/D
     Route: 058
     Dates: start: 20020101, end: 20090101
  2. HUMALOG [Suspect]
     Dosage: 15 IU, 3/D
     Route: 058
     Dates: start: 20090101
  3. HUMALOG [Suspect]
     Dosage: 35 IU, UNK
     Route: 058
     Dates: start: 20091215
  4. LANTUS [Concomitant]
     Indication: DIABETES MELLITUS
     Route: 058

REACTIONS (5)
  - BLOOD GLUCOSE ABNORMAL [None]
  - BLOOD GLUCOSE DECREASED [None]
  - BLOOD GLUCOSE INCREASED [None]
  - DIABETIC COMA [None]
  - DRUG INEFFECTIVE [None]
